FAERS Safety Report 11768862 (Version 2)
Quarter: 2015Q4

REPORT INFORMATION
  Report Type: Spontaneous
  Country: PR (occurrence: PR)
  Receive Date: 20151123
  Receipt Date: 20151204
  Transmission Date: 20160304
  Serious: Yes (Other)
  Sender: FDA-Public Use
  Company Number: US-PFIZER INC-2015398099

PATIENT
  Age: 21 Year
  Sex: Female

DRUGS (1)
  1. ADVIL [Suspect]
     Active Substance: IBUPROFEN
     Dosage: UNK

REACTIONS (5)
  - Diarrhoea [Unknown]
  - Haematochezia [Unknown]
  - Product use issue [Unknown]
  - Faeces discoloured [Unknown]
  - Abdominal pain upper [Unknown]
